FAERS Safety Report 25245050 (Version 1)
Quarter: 2025Q2

REPORT INFORMATION
  Report Type: Spontaneous
  Country: US (occurrence: None)
  Receive Date: 20250425
  Receipt Date: 20250425
  Transmission Date: 20250717
  Serious: No
  Sender: FDA-CTU
  Company Number: None

PATIENT
  Age: 48 Year
  Sex: Female
  Weight: 81 kg

DRUGS (1)
  1. COSENTYX [Suspect]
     Active Substance: SECUKINUMAB
     Indication: Psoriatic arthropathy
     Route: 058
     Dates: start: 20250328, end: 20250425

REACTIONS (7)
  - Paraesthesia [None]
  - Pain in extremity [None]
  - Pustule [None]
  - Skin weeping [None]
  - Peripheral swelling [None]
  - Ear infection [None]
  - Omphalitis [None]

NARRATIVE: CASE EVENT DATE: 20150417
